FAERS Safety Report 6771347-9 (Version None)
Quarter: 2010Q2

REPORT INFORMATION
  Report Type: 
  Country: None (occurrence: None)
  Receive Date: 20100616
  Receipt Date: 20100607
  Transmission Date: 20101027
  Serious: Yes (Other)
  Sender: FDA-Public Use
  Company Number: AU-BRISTOL-MYERS SQUIBB COMPANY-15137763

PATIENT
  Age: 71 Year
  Sex: Female

DRUGS (1)
  1. TRIAMCINOLONE ACETONIDE [Suspect]
     Indication: MACULAR OEDEMA
     Dosage: 1 DF= 0.4MG IN 0.1ML
     Route: 031

REACTIONS (2)
  - ANTERIOR CHAMBER CRYSTALLISATION [None]
  - VISUAL ACUITY REDUCED [None]
